FAERS Safety Report 4805690-7 (Version None)
Quarter: 2005Q4

REPORT INFORMATION
  Report Type: 
  Country: None (occurrence: None)
  Receive Date: 20051021
  Receipt Date: 20050901
  Transmission Date: 20060501
  Serious: Yes (Life-Threatening)
  Sender: FDA-Public Use
  Company Number: JP-ROCHE-416519

PATIENT
  Age: 77 Year
  Sex: Female

DRUGS (12)
  1. ROCEPHIN [Suspect]
     Indication: PNEUMONIA
     Route: 041
     Dates: start: 20050729, end: 20050729
  2. CEFOTIAM HYDROCHLORIDE [Concomitant]
     Indication: PNEUMONIA
     Dosage: DOSE FORM REPORTED AS INJECTABLE
     Route: 050
     Dates: start: 20050719, end: 20050726
  3. ENTERONON-R [Concomitant]
     Route: 065
     Dates: start: 20050719, end: 20050726
  4. ASPIRIN [Concomitant]
     Dosage: RESTARTED ON 20 JULY 2005
     Route: 048
     Dates: start: 20040315, end: 20050712
  5. AMLODIPINE BESYLATE [Concomitant]
     Route: 048
     Dates: start: 20040315, end: 20050722
  6. LASIX [Concomitant]
     Route: 048
     Dates: start: 20040315, end: 20050722
  7. ALDACTONE [Concomitant]
     Dosage: ORAL FORMULATION (UNSPECIFIED)
     Route: 048
     Dates: start: 20040315
  8. NU-LOTAN [Concomitant]
     Route: 048
     Dates: start: 20040315, end: 20050726
  9. BLOPRESS [Concomitant]
     Route: 048
     Dates: start: 20050727
  10. BUSCOPAN [Concomitant]
     Route: 048
     Dates: start: 20050729, end: 20050730
  11. VENETLIN [Concomitant]
     Route: 055
     Dates: start: 20050729, end: 20050804
  12. BISOLVON [Concomitant]
     Route: 055
     Dates: start: 20050729, end: 20050804

REACTIONS (5)
  - ALANINE AMINOTRANSFERASE INCREASED [None]
  - ASPARTATE AMINOTRANSFERASE INCREASED [None]
  - CARDIAC FAILURE [None]
  - DISSEMINATED INTRAVASCULAR COAGULATION [None]
  - LIVER DISORDER [None]
